FAERS Safety Report 5730001-2 (Version None)
Quarter: 2008Q2

REPORT INFORMATION
  Report Type: 
  Country: None (occurrence: None)
  Receive Date: 20080507
  Receipt Date: 20080505
  Transmission Date: 20081010
  Serious: Yes (Other)
  Sender: FDA-Public Use
  Company Number: US-BAYER-200812427NA

PATIENT
  Sex: Female

DRUGS (1)
  1. MIRENA [Suspect]
     Dates: start: 20071030, end: 20080122

REACTIONS (1)
  - PELVIC INFLAMMATORY DISEASE [None]
